FAERS Safety Report 16499682 (Version 2)
Quarter: 2019Q3

REPORT INFORMATION
  Report Type: Report from Study
  Country: JP (occurrence: JP)
  Receive Date: 20190701
  Receipt Date: 20190718
  Transmission Date: 20191004
  Serious: Yes (Hospitalization)
  Sender: FDA-Public Use
  Company Number: JP-AMGEN-JPNCT2019103921

PATIENT
  Age: 50 Year
  Sex: Female

DRUGS (18)
  1. DEPAKENE-R [Concomitant]
     Active Substance: VALPROATE SODIUM
     Dosage: 800 MG
     Route: 048
     Dates: start: 20190215, end: 20190221
  2. BUSULFEX [Concomitant]
     Active Substance: BUSULFAN
     Dosage: 175 MG
     Route: 065
     Dates: start: 20190218, end: 20190219
  3. FUNGUARD [Concomitant]
     Active Substance: MICAFUNGIN SODIUM
     Dosage: 50 MG
     Route: 065
     Dates: start: 20190215, end: 20190329
  4. NEORAL [Concomitant]
     Active Substance: CYCLOSPORINE
     Dosage: UNK
     Route: 048
     Dates: start: 20190221
  5. METHOTREXATE. [Concomitant]
     Active Substance: METHOTREXATE
     Dosage: UNK
     Route: 065
     Dates: start: 20190223, end: 20190228
  6. IDAMYCIN [Concomitant]
     Active Substance: IDARUBICIN HYDROCHLORIDE
     Dosage: 18 MILLIGRAM
     Route: 065
     Dates: start: 20181217, end: 20181219
  7. LANSOPRAZOLE. [Concomitant]
     Active Substance: LANSOPRAZOLE
     Dosage: 15 MILLIGRAM
     Route: 048
     Dates: start: 20180618, end: 20181202
  8. VANCOMYCIN [Concomitant]
     Active Substance: VANCOMYCIN
     Dosage: 2.0 G
     Route: 065
     Dates: start: 20180103, end: 20190115
  9. ACICLOVIR [Concomitant]
     Active Substance: ACYCLOVIR
     Dosage: 1000 MG
     Route: 048
     Dates: start: 20190213, end: 20190329
  10. LEVOFLOXACIN HEMIHYDRATE [Concomitant]
     Active Substance: LEVOFLOXACIN
     Dosage: 500 MILLIGRAM
     Route: 048
     Dates: start: 20190215, end: 20190306
  11. DARBEPOETIN ALFA [Suspect]
     Active Substance: DARBEPOETIN ALFA
     Indication: MYELODYSPLASTIC SYNDROME
     Dosage: 120 MICROGRAM, QWK
     Route: 065
     Dates: start: 20180528, end: 20180809
  12. JADENU [Concomitant]
     Active Substance: DEFERASIROX
     Dosage: 540 MILLIGRAM
     Route: 048
     Dates: start: 20181018, end: 20181114
  13. URSO [Concomitant]
     Active Substance: URSODIOL
     Dosage: 600 MILLIGRAM
     Route: 048
     Dates: start: 20190215
  14. FINIBAX [Concomitant]
     Active Substance: DORIPENEM MONOHYDRATE
     Dosage: 1.5 G
     Route: 065
     Dates: start: 20190304, end: 20190318
  15. FLUDARA [Concomitant]
     Active Substance: FLUDARABINE PHOSPHATE
     Dosage: 38 MG
     Route: 065
     Dates: start: 20190215, end: 20190220
  16. MEROPENEM. [Concomitant]
     Active Substance: MEROPENEM
     Dosage: 3 GRAM
     Route: 065
     Dates: start: 20181129, end: 20181212
  17. CYLOCIDE [Concomitant]
     Active Substance: CYTARABINE
     Dosage: 160 MILLIGRAM
     Route: 065
     Dates: start: 20181217, end: 20181223
  18. FINIBAX [Concomitant]
     Active Substance: DORIPENEM MONOHYDRATE
     Dosage: 1.5 GRAM
     Route: 065
     Dates: start: 20181227, end: 20190115

REACTIONS (6)
  - Febrile neutropenia [Recovering/Resolving]
  - Gastritis [Recovering/Resolving]
  - Acute myeloid leukaemia [Recovering/Resolving]
  - Pneumonia [Recovering/Resolving]
  - Febrile neutropenia [Recovering/Resolving]
  - Iron overload [Not Recovered/Not Resolved]

NARRATIVE: CASE EVENT DATE: 20180618
